FAERS Safety Report 6559825-9 (Version None)
Quarter: 2010Q1

REPORT INFORMATION
  Report Type: 
  Country: None (occurrence: None)
  Receive Date: 20100129
  Receipt Date: 20090914
  Transmission Date: 20100710
  Serious: No
  Sender: FDA-Public Use
  Company Number: US-ABBOTT-09P-163-0597542-00

PATIENT
  Sex: Male
  Weight: 77.18 kg

DRUGS (3)
  1. HUMIRA [Suspect]
     Indication: CROHN'S DISEASE
     Dates: start: 20090216
  2. OMEPRAZOLE [Concomitant]
     Indication: HIATUS HERNIA
  3. DOMPERIDONE [Concomitant]
     Indication: CROHN'S DISEASE

REACTIONS (2)
  - NASOPHARYNGITIS [None]
  - RESPIRATORY TRACT CONGESTION [None]
